FAERS Safety Report 4510782-6 (Version None)
Quarter: 2004Q4

REPORT INFORMATION
  Report Type: 
  Country: None (occurrence: None)
  Receive Date: 20041122
  Receipt Date: 20041104
  Transmission Date: 20050328
  Serious: Yes (Life-Threatening, Hospitalization)
  Sender: FDA-Public Use
  Company Number: 210431

PATIENT
  Age: 39 Year
  Sex: Female
  Weight: 39 kg

DRUGS (4)
  1. HERCEPTIN [Suspect]
     Indication: BREAST CANCER METASTATIC
     Dosage: 160 MG, 1/WEEK, INTRAVENOUS; 80 MG, INTRAVENOUS
     Route: 042
     Dates: start: 20040922
  2. HERCEPTIN [Suspect]
     Indication: BREAST CANCER METASTATIC
     Dosage: 160 MG, 1/WEEK, INTRAVENOUS; 80 MG, INTRAVENOUS
     Route: 042
     Dates: start: 20040929
  3. NAVELBINE [Suspect]
     Indication: BREAST CANCER METASTATIC
     Dosage: 30 MG, 1/WEEK, INTRAVENOUS
     Route: 042
     Dates: start: 20040922
  4. TAXOTERE [Concomitant]

REACTIONS (4)
  - CLOSTRIDIUM COLITIS [None]
  - FEBRILE NEUTROPENIA [None]
  - HYPOALBUMINAEMIA [None]
  - TOXIC DILATATION OF COLON [None]
